FAERS Safety Report 9925473 (Version 1)
Quarter: 2014Q1

REPORT INFORMATION
  Report Type: Spontaneous
  Country: US (occurrence: None)
  Receive Date: 20140225
  Receipt Date: 20140225
  Transmission Date: 20141002
  Serious: No
  Sender: FDA-Public Use
  Company Number: None

PATIENT
  Age: 66 Year
  Sex: Male
  Weight: 71.8 kg

DRUGS (1)
  1. COLESTIPOL [Suspect]
     Indication: HYPERLIPIDAEMIA
     Route: 048
     Dates: start: 20130610, end: 20130711

REACTIONS (7)
  - Muscular weakness [None]
  - Loss of control of legs [None]
  - Dyspnoea [None]
  - Myalgia [None]
  - Blood urea increased [None]
  - Blood creatine phosphokinase increased [None]
  - Blood creatine increased [None]
